FAERS Safety Report 7981924-5 (Version None)
Quarter: 2011Q4

REPORT INFORMATION
  Report Type: 
  Country: None (occurrence: None)
  Receive Date: 20111215
  Receipt Date: 20111205
  Transmission Date: 20120403
  Serious: Yes (Hospitalization, Other)
  Sender: FDA-Public Use
  Company Number: US-BAYER-2011-115420

PATIENT
  Age: 27 Year
  Sex: Female

DRUGS (3)
  1. YASMIN [Suspect]
     Indication: CONTRACEPTION
     Dosage: UNK
     Route: 048
     Dates: start: 20080601, end: 20090901
  2. ADDERALL 5 [Concomitant]
     Indication: DISTURBANCE IN ATTENTION
     Dosage: UNK
     Route: 048
     Dates: end: 20110101
  3. YASMIN [Suspect]
     Indication: ACNE

REACTIONS (13)
  - CHOLECYSTECTOMY [None]
  - EMOTIONAL DISTRESS [None]
  - NAUSEA [None]
  - CHOLECYSTITIS ACUTE [None]
  - DEPRESSION [None]
  - VOMITING [None]
  - MUSCLE SPASMS [None]
  - FEAR OF DEATH [None]
  - DISCOMFORT [None]
  - INJURY [None]
  - PAIN [None]
  - NERVOUSNESS [None]
  - INSOMNIA [None]
